FAERS Safety Report 8571629-4 (Version None)
Quarter: 2012Q3

REPORT INFORMATION
  Report Type: 
  Country: None (occurrence: None)
  Receive Date: 20120806
  Receipt Date: 20120727
  Transmission Date: 20120928
  Serious: Yes (Hospitalization, Other)
  Sender: FDA-Public Use
  Company Number: US-BAYER-2012-076664

PATIENT
  Age: 39 Year
  Sex: Female

DRUGS (14)
  1. LUNESTA [Concomitant]
     Dosage: 3 MG, UNK
     Dates: start: 20060104, end: 20060604
  2. GLUCOSAMINE [Concomitant]
     Dosage: UNK
     Dates: start: 20060304
  3. IBUPROFEN [Concomitant]
     Dosage: 800 MG, UNK
     Dates: start: 20060306
  4. PROMETHAZINE [Concomitant]
     Dosage: 25 MG, UNK
     Dates: start: 20060306
  5. TRAMADOL HCT - ACETAMINOPHEN [Concomitant]
     Dosage: UNK
     Dates: start: 20060104, end: 20060513
  6. ZYRTEC [Concomitant]
     Dosage: 10 MG, UNK
     Dates: start: 20060113, end: 20060530
  7. PRILOSEC [Concomitant]
     Dosage: UNK
     Dates: start: 20060304
  8. YASMIN [Suspect]
  9. HYDROCODONE BITARTRATE AND ACETAMINOPHEN [Concomitant]
     Dosage: 5-500
     Dates: start: 20060103, end: 20060123
  10. CLONAZEPAM [Concomitant]
     Dosage: 0.5 MG, UNK
     Dates: start: 20060104, end: 20060517
  11. TRAMADOL HYDROCHLORIDE [Concomitant]
     Dosage: 50 MG, UNK
     Dates: start: 20060120
  12. OXYCODONE HCL AND ACETAMINOPHEN [Concomitant]
     Dosage: 10-325 MG
     Dates: start: 20060306
  13. MULTI-VITAMINS [Concomitant]
     Dosage: UNK
     Dates: start: 20060304
  14. MOMETASONE FUROATE [Concomitant]
     Dosage: UNK
     Dates: start: 20060213

REACTIONS (2)
  - PULMONARY EMBOLISM [None]
  - DEEP VEIN THROMBOSIS [None]
